FAERS Safety Report 4589704-8 (Version None)
Quarter: 2005Q1

REPORT INFORMATION
  Report Type: 
  Country: None (occurrence: None)
  Receive Date: 20050217
  Receipt Date: 20050204
  Transmission Date: 20050727
  Serious: Yes (Hospitalization)
  Sender: FDA-Public Use
  Company Number: 2005AP00848

PATIENT
  Age: 85 Year
  Sex: Male

DRUGS (4)
  1. ATACAND HCT [Suspect]
     Indication: ESSENTIAL HYPERTENSION
     Dosage: 1 DF DAILY PO
     Route: 048
     Dates: end: 20041025
  2. NATRILIX [Suspect]
     Indication: ESSENTIAL HYPERTENSION
     Dosage: 2 MG DAILY PO
     Route: 048
     Dates: end: 20041025
  3. TRAMAL [Suspect]
     Dosage: 50 MG PRN PO
     Route: 048
     Dates: end: 20041025
  4. MOBIC [Concomitant]

REACTIONS (5)
  - CONFUSIONAL STATE [None]
  - DISORIENTATION [None]
  - FALL [None]
  - HYPONATRAEMIA [None]
  - IMMOBILE [None]
